FAERS Safety Report 17166484 (Version 2)
Quarter: 2019Q4

REPORT INFORMATION
  Report Type: Spontaneous
  Country: US (occurrence: US)
  Receive Date: 20191217
  Receipt Date: 20191220
  Transmission Date: 20200122
  Serious: No
  Sender: FDA-Public Use
  Company Number: US-FRESENIUS KABI-FK201913884

PATIENT
  Sex: Female

DRUGS (8)
  1. TRIGLYCERIDES/FISH OIL/GLYCINE MAX SEED OIL/OLEA EUROPAEA OIL [Concomitant]
     Indication: PRODUCT USED FOR UNKNOWN INDICATION
     Dosage: UNKNOWN
     Route: 065
     Dates: end: 20191208
  2. OMEGAVEN [Suspect]
     Active Substance: FISH OIL
     Indication: CHOLESTASIS
     Dosage: 0.5GM PER KG
     Route: 065
     Dates: start: 20191120, end: 20191129
  3. OMEGAVEN [Suspect]
     Active Substance: FISH OIL
     Dosage: 0.5GM PER KG
     Route: 065
     Dates: start: 20191130, end: 20191201
  4. GLUCOSE [Concomitant]
     Active Substance: DEXTROSE
     Dosage: LESS THAN OR EQUAL TO 13 MG CHO/KG/MIN
     Route: 065
     Dates: start: 20191202
  5. OMEGAVEN [Suspect]
     Active Substance: FISH OIL
     Dosage: 1 GM PER KG
     Route: 065
     Dates: start: 20191202, end: 20191204
  6. GLUCOSE [Concomitant]
     Active Substance: DEXTROSE
     Indication: PRODUCT USED FOR UNKNOWN INDICATION
     Dosage: 14-15 MG CHO/KG/MIN
     Route: 065
     Dates: end: 20191202
  7. NO DRUG NAME [Concomitant]
     Active Substance: UNSPECIFIED INGREDIENT
     Indication: MECHANICAL VENTILATION
     Dosage: UNKNOWN
     Route: 065
  8. OMEGAVEN [Suspect]
     Active Substance: FISH OIL
     Dosage: 0.5GM PER KG
     Route: 065
     Dates: start: 20191204, end: 20191208

REACTIONS (6)
  - Therapeutic response unexpected [Unknown]
  - Bilirubin conjugated abnormal [Unknown]
  - Hypercholesterolaemia [Unknown]
  - Blood cholesterol increased [Unknown]
  - Liver function test abnormal [Unknown]
  - Blood triglycerides decreased [Unknown]

NARRATIVE: CASE EVENT DATE: 20191127
